FAERS Safety Report 20967286 (Version 1)
Quarter: 2022Q2

REPORT INFORMATION
  Report Type: Spontaneous
  Country: US (occurrence: US)
  Receive Date: 20220616
  Receipt Date: 20220616
  Transmission Date: 20220721
  Serious: Yes (Death)
  Sender: FDA-Public Use
  Company Number: US-INTRA-CELLULAR THERAPIES, INC.-2022ICT00621

PATIENT
  Age: 57 Year

DRUGS (1)
  1. CAPLYTA [Suspect]
     Active Substance: LUMATEPERONE
     Indication: Bipolar disorder
     Dosage: 42 MG
     Dates: start: 20220511

REACTIONS (3)
  - Death [Fatal]
  - Lethargy [Unknown]
  - Back pain [Unknown]

NARRATIVE: CASE EVENT DATE: 20220501
